FAERS Safety Report 21753719 (Version 2)
Quarter: 2023Q1

REPORT INFORMATION
  Report Type: Spontaneous
  Country: US (occurrence: US)
  Receive Date: 20221220
  Receipt Date: 20230125
  Transmission Date: 20230417
  Serious: Yes (Other)
  Sender: FDA-Public Use
  Company Number: US-MLMSERVICE-20221130-3946117-1

PATIENT
  Age: 15 Year
  Sex: Female

DRUGS (6)
  1. RISPERIDONE [Interacting]
     Active Substance: RISPERIDONE
     Indication: Psychotic symptom
     Dosage: 2 MILLIGRAM, ONCE A DAY
     Route: 048
  2. RISPERIDONE [Interacting]
     Active Substance: RISPERIDONE
     Indication: Mania
     Dosage: 6 MILLIGRAM, ONCE A DAY
     Route: 048
  3. RISPERIDONE [Interacting]
     Active Substance: RISPERIDONE
     Indication: Bipolar I disorder
     Dosage: 0.5 MILLIGRAM
     Route: 065
  4. LITHIUM [Interacting]
     Active Substance: LITHIUM
     Indication: Mania
     Dosage: 600 MILLIGRAM, ONCE A DAY
     Route: 065
  5. LITHIUM [Interacting]
     Active Substance: LITHIUM
     Indication: Psychotic symptom
  6. LITHIUM [Interacting]
     Active Substance: LITHIUM
     Indication: Bipolar I disorder

REACTIONS (3)
  - Antipsychotic drug level increased [Recovered/Resolved]
  - Parkinsonism [Recovered/Resolved]
  - Drug interaction [Recovered/Resolved]
